FAERS Safety Report 9454371 (Version 1)
Quarter: 2013Q3

REPORT INFORMATION
  Report Type: Spontaneous
  Country: FR (occurrence: FR)
  Receive Date: 20130812
  Receipt Date: 20130812
  Transmission Date: 20140515
  Serious: Yes (Hospitalization)
  Sender: FDA-Public Use
  Company Number: FR-ROCHE-1260199

PATIENT
  Age: 53 Year
  Sex: Female

DRUGS (12)
  1. ROCEPHINE [Suspect]
     Indication: PNEUMONIA
     Route: 042
     Dates: start: 20130718, end: 20130723
  2. ROVAMYCINE [Suspect]
     Indication: PNEUMONIA
     Route: 042
     Dates: start: 20130718, end: 20130724
  3. DEPAKINE [Suspect]
     Indication: EPILEPSY
     Route: 048
     Dates: start: 20130321, end: 20130723
  4. URBANYL [Suspect]
     Indication: EPILEPSY
     Route: 048
     Dates: start: 20130321, end: 20130723
  5. CELLCEPT [Concomitant]
     Indication: ANTIPHOSPHOLIPID SYNDROME
     Route: 065
  6. PREVISCAN (FRANCE) [Concomitant]
     Indication: ANTIPHOSPHOLIPID SYNDROME
     Route: 065
  7. BACTRIM FORTE [Concomitant]
     Route: 065
  8. KAYEXALATE [Concomitant]
  9. RENAGEL [Concomitant]
  10. TAHOR [Concomitant]
  11. INEXIUM [Concomitant]
     Indication: ULCER
  12. DELURSAN [Concomitant]
     Indication: CHOLESTASIS

REACTIONS (1)
  - Hepatitis acute [Recovering/Resolving]
